FAERS Safety Report 6391316-0 (Version None)
Quarter: 2009Q4

REPORT INFORMATION
  Report Type: 
  Country: None (occurrence: None)
  Receive Date: 20091007
  Receipt Date: 20090930
  Transmission Date: 20100525
  Serious: Yes (Other)
  Sender: FDA-Public Use
  Company Number: PHHY2009JP40002

PATIENT
  Age: 15 Year
  Sex: Male

DRUGS (1)
  1. TEGRETOL [Suspect]
     Indication: PARTIAL SEIZURES
     Dosage: 100MG, DAILY
     Route: 048
     Dates: start: 20090831, end: 20090913

REACTIONS (3)
  - ERYTHEMA MULTIFORME [None]
  - LYMPHOCYTE STIMULATION TEST POSITIVE [None]
  - TOXIC SKIN ERUPTION [None]
